FAERS Safety Report 6527630-5 (Version None)
Quarter: 2010Q1

REPORT INFORMATION
  Report Type: 
  Country: None (occurrence: None)
  Receive Date: 20100105
  Receipt Date: 20090921
  Transmission Date: 20100710
  Serious: Yes (Other)
  Sender: FDA-Public Use
  Company Number: BR-PFIZER INC-2009267421

PATIENT
  Age: 60 Year
  Sex: Female
  Weight: 49 kg

DRUGS (3)
  1. CHAMPIX [Suspect]
     Dosage: 2MG, DAILY
     Route: 048
     Dates: start: 20080401, end: 20090401
  2. BROMAZEPAM [Concomitant]
     Dosage: UNK
     Dates: start: 19990101
  3. RIVOTRIL [Concomitant]
     Dosage: UNK
     Dates: start: 19990101

REACTIONS (2)
  - EMPHYSEMA [None]
  - NERVOUSNESS [None]
